FAERS Safety Report 15226277 (Version 1)
Quarter: 2018Q4

REPORT INFORMATION
  Report Type: Spontaneous
  Country: FR (occurrence: FR)
  Receive Date: 20180801
  Receipt Date: 20180801
  Transmission Date: 20190204
  Serious: Yes (Other)
  Sender: FDA-Public Use
  Company Number: FR-B. BRAUN MEDICAL INC.-2053069

PATIENT
  Age: 53 Year
  Sex: Female

DRUGS (1)
  1. POTASSIUM CHLORIDE FOR INJECTION CONCENTRATE USP 0264-1940-20 (ANDA 08 [Suspect]
     Active Substance: POTASSIUM CHLORIDE
     Dates: start: 20180205, end: 20180205

REACTIONS (3)
  - Hyperkalaemia [Recovered/Resolved]
  - Product administration error [Recovered/Resolved]
  - Hyperhidrosis [Recovered/Resolved]

NARRATIVE: CASE EVENT DATE: 20180205
